FAERS Safety Report 14181609 (Version 1)
Quarter: 2017Q4

REPORT INFORMATION
  Report Type: Spontaneous
  Country: US (occurrence: US)
  Receive Date: 20171113
  Receipt Date: 20171113
  Transmission Date: 20180321
  Serious: No
  Sender: FDA-Public Use
  Company Number: US-B.I. PHARMACEUTICALS,INC./RIDGEFIELD-2017-BI-059861

PATIENT
  Age: 45 Year
  Sex: Female

DRUGS (4)
  1. COMBIVENT [Suspect]
     Active Substance: ALBUTEROL SULFATE\IPRATROPIUM BROMIDE
     Indication: DRUG THERAPY
  2. ADVAIR DAILY [Concomitant]
     Indication: ASTHMA
     Route: 065
     Dates: start: 2007
  3. COMBIVENT [Suspect]
     Active Substance: ALBUTEROL SULFATE\IPRATROPIUM BROMIDE
     Indication: ASTHMA
     Dosage: STRENGTH AND UNIT: 20MCG/100MCG; DAILY DOSE: 20MCG/100MCG-80MCG/400MCG; ADMINISTRATION CORRECT? YES
     Route: 055
     Dates: start: 2011
  4. COMBIVENT [Suspect]
     Active Substance: ALBUTEROL SULFATE\IPRATROPIUM BROMIDE
     Indication: ASTHMA

REACTIONS (4)
  - Drug ineffective [Not Recovered/Not Resolved]
  - Device issue [Not Recovered/Not Resolved]
  - Product quality issue [Unknown]
  - Off label use [Unknown]

NARRATIVE: CASE EVENT DATE: 201710
